FAERS Safety Report 7131523-2 (Version None)
Quarter: 2010Q4

REPORT INFORMATION
  Report Type: 
  Country: None (occurrence: None)
  Receive Date: 20101201
  Receipt Date: 20101125
  Transmission Date: 20110411
  Serious: Yes (Other)
  Sender: FDA-Public Use
  Company Number: FR-B.I. PHARMACEUTICALS,INC./RIDGEFIELD-2010-FF-00796FF

PATIENT
  Sex: Female
  Weight: 77 kg

DRUGS (4)
  1. PRADAXA [Suspect]
     Indication: KNEE ARTHROPLASTY
     Dosage: 220 MG
     Route: 048
     Dates: start: 20100607, end: 20100628
  2. PROFENID [Suspect]
     Dosage: 200 MG
     Route: 048
     Dates: start: 20100621, end: 20100628
  3. PARIET [Concomitant]
     Indication: GASTRITIS
     Route: 048
  4. TAHOR [Concomitant]
     Indication: HYPERCHOLESTEROLAEMIA
     Route: 048

REACTIONS (2)
  - DRUG INEFFECTIVE [None]
  - PHLEBITIS [None]
